FAERS Safety Report 17152828 (Version 3)
Quarter: 2019Q4

REPORT INFORMATION
  Report Type: Spontaneous
  Country: RU (occurrence: RU)
  Receive Date: 20191213
  Receipt Date: 20191230
  Transmission Date: 20200122
  Serious: Yes (Hospitalization)
  Sender: FDA-Public Use
  Company Number: NVSC2019RU067080

PATIENT
  Age: 5 Year
  Sex: Female

DRUGS (1)
  1. AMOXICILLIN,CLAVULANIC ACID [Suspect]
     Active Substance: AMOXICILLIN\CLAVULANIC ACID
     Indication: PRODUCT USED FOR UNKNOWN INDICATION
     Dosage: 45 MG/KG, QD
     Route: 048
     Dates: start: 20150509

REACTIONS (13)
  - Otitis media acute [Unknown]
  - Streptococcal infection [Unknown]
  - Gradenigo^s syndrome [Unknown]
  - Vomiting [Unknown]
  - Strabismus [Recovered/Resolved]
  - Leukocytosis [Unknown]
  - Body temperature increased [Unknown]
  - Petrositis [Unknown]
  - Hyperaesthesia [Unknown]
  - Diplopia [Recovered/Resolved]
  - Papilloedema [Unknown]
  - Mastoiditis [Unknown]
  - Neutrophilia [Unknown]

NARRATIVE: CASE EVENT DATE: 20150511
